FAERS Safety Report 4885745-1 (Version None)
Quarter: 2006Q1

REPORT INFORMATION
  Report Type: 
  Country: None (occurrence: None)
  Receive Date: 20060117
  Receipt Date: 20060104
  Transmission Date: 20060701
  Serious: Yes (Death, Hospitalization)
  Sender: FDA-Public Use
  Company Number: 2005169271

PATIENT
  Age: 81 Year
  Sex: Male

DRUGS (7)
  1. SULFASALAZINE [Suspect]
     Indication: DIARRHOEA
     Dosage: 3 GRAM (1 GRAM, 3 IN 1 D), ORAL
     Route: 048
     Dates: start: 20051001, end: 20051101
  2. NAFTIDROFURYL (NAFTIDROFURYL) [Concomitant]
  3. PENTOXYPHYLLINE (PNETOXYPHYLLINE) [Concomitant]
  4. OMEPRAZOLE [Concomitant]
  5. LOPERAMID (LOPERAMIDE HYDROCHLORIDE) [Concomitant]
  6. SETRALINE (SERTRALINE) [Concomitant]
  7. PANCREATIN TRIPLE STRENGTH CAP [Concomitant]

REACTIONS (12)
  - AGRANULOCYTOSIS [None]
  - BENIGN PROSTATIC HYPERPLASIA [None]
  - CARDIAC FAILURE [None]
  - COLITIS ISCHAEMIC [None]
  - DEPRESSION [None]
  - DIVERTICULITIS [None]
  - HYPOKALAEMIA [None]
  - LEUKOPENIA [None]
  - MYOCARDIAL ISCHAEMIA [None]
  - PANCREATIC INSUFFICIENCY [None]
  - RENAL FAILURE ACUTE [None]
  - SEPSIS [None]
